FAERS Safety Report 16778539 (Version 2)
Quarter: 2019Q3

REPORT INFORMATION
  Report Type: Spontaneous
  Country: US (occurrence: US)
  Receive Date: 20190906
  Receipt Date: 20190906
  Transmission Date: 20191005
  Serious: No
  Sender: FDA-Public Use
  Company Number: US-CIPLA LTD.-2019US04871

PATIENT

DRUGS (3)
  1. BUPROPION HYDROCHLORIDE XL [Suspect]
     Active Substance: BUPROPION HYDROCHLORIDE
     Indication: ANXIETY
     Dosage: 300 MILLIGRAM, QD
     Route: 048
     Dates: start: 20190621, end: 20190627
  2. MECLIZINE HCL [Concomitant]
     Active Substance: MECLIZINE HYDROCHLORIDE
     Indication: DIZZINESS
     Dosage: 25 MILLIGRAM, BID
     Route: 065
     Dates: start: 20190627
  3. BUPROPION HYDROCHLORIDE XL [Suspect]
     Active Substance: BUPROPION HYDROCHLORIDE
     Indication: DEPRESSION

REACTIONS (10)
  - Nausea [Recovering/Resolving]
  - Photophobia [Recovering/Resolving]
  - Tinnitus [Unknown]
  - Headache [Recovering/Resolving]
  - Vertigo [Recovering/Resolving]
  - Product substitution issue [Unknown]
  - Gait inability [Unknown]
  - Impaired work ability [Unknown]
  - Impaired driving ability [Unknown]
  - Fatigue [Recovering/Resolving]

NARRATIVE: CASE EVENT DATE: 201906
